FAERS Safety Report 5851356-4 (Version None)
Quarter: 2008Q3

REPORT INFORMATION
  Report Type: 
  Country: None (occurrence: None)
  Receive Date: 20080731
  Receipt Date: 20080604
  Transmission Date: 20090109
  Serious: No
  Sender: FDA-Public Use
  Company Number: 2006PV021602

PATIENT
  Age: 64 Year
  Sex: Female
  Weight: 86.2 kg

DRUGS (6)
  1. BYETTA [Suspect]
     Indication: TYPE 2 DIABETES MELLITUS
     Dosage: 5 UG, 2/D, SUBCUTANEOUS : 10 UG, 2/D, SUBCUTANEOUS : 10 UG, EACH EVENING, SUBCUTANEOUS
     Route: 058
     Dates: start: 20060701, end: 20060801
  2. BYETTA [Suspect]
     Indication: TYPE 2 DIABETES MELLITUS
     Dosage: 5 UG, 2/D, SUBCUTANEOUS : 10 UG, 2/D, SUBCUTANEOUS : 10 UG, EACH EVENING, SUBCUTANEOUS
     Route: 058
     Dates: start: 20071201, end: 20080101
  3. BYETTA [Suspect]
     Indication: TYPE 2 DIABETES MELLITUS
     Dosage: 5 UG, 2/D, SUBCUTANEOUS : 10 UG, 2/D, SUBCUTANEOUS : 10 UG, EACH EVENING, SUBCUTANEOUS
     Route: 058
     Dates: start: 20060801
  4. BYETTA [Suspect]
     Indication: TYPE 2 DIABETES MELLITUS
     Dosage: 5 UG, 2/D, SUBCUTANEOUS : 10 UG, 2/D, SUBCUTANEOUS : 10 UG, EACH EVENING, SUBCUTANEOUS
     Route: 058
     Dates: start: 20080101
  5. GLUCOPHAGE [Concomitant]
  6. GLIPIZIDE [Concomitant]

REACTIONS (3)
  - DECREASED APPETITE [None]
  - INJECTION SITE URTICARIA [None]
  - WEIGHT DECREASED [None]
